FAERS Safety Report 25352564 (Version 2)
Quarter: 2025Q2

REPORT INFORMATION
  Report Type: Spontaneous
  Country: CZ (occurrence: CZ)
  Receive Date: 20250523
  Receipt Date: 20250527
  Transmission Date: 20250716
  Serious: Yes (Death)
  Sender: NOVARTIS
  Company Number: CZ-002147023-NVSC2025CZ082789

PATIENT
  Age: 41 Year
  Sex: Male

DRUGS (1)
  1. ASCIMINIB [Suspect]
     Active Substance: ASCIMINIB
     Indication: Chronic myeloid leukaemia
     Route: 065
     Dates: start: 20230808, end: 2024

REACTIONS (2)
  - Transplantation complication [Fatal]
  - Therapy non-responder [Unknown]
